FAERS Safety Report 18480766 (Version 1)
Quarter: 2020Q4

REPORT INFORMATION
  Report Type: Spontaneous
  Country: ES (occurrence: ES)
  Receive Date: 20201109
  Receipt Date: 20201109
  Transmission Date: 20210114
  Serious: Yes (Hospitalization)
  Sender: FDA-Public Use
  Company Number: ES-MYLANLABS-2020M1093425

PATIENT
  Age: 75 Year
  Sex: Female

DRUGS (7)
  1. AMIODARONA                         /00133101/ [Concomitant]
     Active Substance: AMIODARONE
     Indication: ATRIAL FIBRILLATION
     Dosage: 200 MILLIGRAM, QD
     Route: 048
     Dates: start: 20200409
  2. METFORMIN [Suspect]
     Active Substance: METFORMIN HYDROCHLORIDE
     Indication: TYPE 2 DIABETES MELLITUS
     Dosage: 850 MILLIGRAM, BID
     Route: 048
     Dates: start: 20200423, end: 20201006
  3. SINTROM [Concomitant]
     Active Substance: ACENOCOUMAROL
     Indication: THROMBOSIS
     Dosage: 2 MILLIGRAM, QD
     Route: 048
     Dates: start: 20200406
  4. BACLOFENO [Concomitant]
     Indication: ATRIAL FIBRILLATION
     Dosage: 10 MILLIGRAM, Q8H
     Route: 048
     Dates: start: 20200408
  5. PREGABALINA [Concomitant]
     Active Substance: PREGABALIN
     Indication: TENDON RUPTURE
     Dosage: UNK
     Route: 048
     Dates: start: 20200408
  6. OMEPRAZOL                          /00661201/ [Concomitant]
     Active Substance: OMEPRAZOLE
     Indication: THROMBOSIS
     Dosage: 20 MILLIGRAM, QD
     Route: 048
     Dates: start: 20200807
  7. PARACETAMOL [Concomitant]
     Active Substance: ACETAMINOPHEN
     Indication: TENDON RUPTURE
     Dosage: 1 GRAM, Q8H
     Route: 048
     Dates: start: 20200423

REACTIONS (1)
  - Metabolic acidosis [Recovering/Resolving]

NARRATIVE: CASE EVENT DATE: 20201006
